FAERS Safety Report 18974310 (Version 1)
Quarter: 2021Q1

REPORT INFORMATION
  Report Type: Report from Study
  Country: CA (occurrence: CA)
  Receive Date: 20210305
  Receipt Date: 20210305
  Transmission Date: 20210420
  Serious: Yes (Hospitalization)
  Sender: FDA-Public Use
  Company Number: CA-HLS-202106870

PATIENT
  Sex: Male

DRUGS (1)
  1. CLOZARIL [Suspect]
     Active Substance: CLOZAPINE
     Indication: PSYCHOTIC DISORDER
     Dosage: UNKNOWN
     Route: 048
     Dates: start: 20201030

REACTIONS (4)
  - Off label use [Not Recovered/Not Resolved]
  - Anxiety [Unknown]
  - Agitation [Unknown]
  - Dementia with Lewy bodies [Unknown]
